FAERS Safety Report 19973578 (Version 1)
Quarter: 2021Q4

REPORT INFORMATION
  Report Type: Spontaneous
  Country: US (occurrence: US)
  Receive Date: 20211019
  Receipt Date: 20211019
  Transmission Date: 20220303
  Serious: No
  Sender: FDA-Public Use
  Company Number: None

PATIENT
  Sex: Female

DRUGS (1)
  1. DUPIXENT [Suspect]
     Active Substance: DUPILUMAB
     Indication: Dermatitis atopic
     Dosage: OTHER ROUTE:UNDER THE SKIN
     Route: 058
     Dates: start: 202110

REACTIONS (3)
  - Wrong technique in product usage process [None]
  - Needle issue [None]
  - Incorrect dose administered by device [None]
